FAERS Safety Report 24092923 (Version 1)
Quarter: 2024Q3

REPORT INFORMATION
  Report Type: Spontaneous
  Country: US (occurrence: US)
  Receive Date: 20240715
  Receipt Date: 20240715
  Transmission Date: 20241017
  Serious: No
  Sender: TEVA
  Company Number: US-TEVA-VS-3217826

PATIENT
  Age: 68 Year
  Sex: Male

DRUGS (1)
  1. VENLAFAXINE [Suspect]
     Active Substance: VENLAFAXINE HYDROCHLORIDE
     Indication: Mood swings
     Dosage: UNKNOWN
     Route: 065
     Dates: start: 20231219

REACTIONS (1)
  - Somnolence [Not Recovered/Not Resolved]
